FAERS Safety Report 8775489 (Version 4)
Quarter: 2013Q3

REPORT INFORMATION
  Report Type: Report from Study
  Country: IN (occurrence: IN)
  Receive Date: 20120911
  Receipt Date: 20130725
  Transmission Date: 20140515
  Serious: Yes (Death, Life-Threatening, Hospitalization)
  Sender: FDA-Public Use
  Company Number: IN-ROCHE-1118222

PATIENT
  Age: 58 Year
  Sex: Male
  Weight: 56 kg

DRUGS (3)
  1. RITUXIMAB [Suspect]
     Indication: NON-HODGKIN^S LYMPHOMA
     Dosage: DAY 1 OF EACH 28 DAY CYCLE
     Route: 042
     Dates: start: 20120716, end: 20120716
  2. BENDAMUSTINE [Suspect]
     Indication: NON-HODGKIN^S LYMPHOMA
     Dosage: DAY 1 AND 2 OF EACH 28 DAY CYCLE
     Route: 042
     Dates: start: 20120716, end: 20120717
  3. PANTOPRAZOLE [Concomitant]
     Indication: GASTRITIS
     Route: 048
     Dates: start: 20120730, end: 20120805

REACTIONS (15)
  - Pneumonia fungal [Fatal]
  - Lymphoma [Fatal]
  - Disease progression [Fatal]
  - Febrile neutropenia [Fatal]
  - Salmonella sepsis [Fatal]
  - Haematuria [Not Recovered/Not Resolved]
  - Decreased appetite [Not Recovered/Not Resolved]
  - Hyperuricaemia [Not Recovered/Not Resolved]
  - Oral candidiasis [Not Recovered/Not Resolved]
  - Nausea [Not Recovered/Not Resolved]
  - Thrombocytopenia [Not Recovered/Not Resolved]
  - Asthenia [Not Recovered/Not Resolved]
  - Pyrexia [Recovering/Resolving]
  - Hypotension [Recovering/Resolving]
  - Dyspnoea [Not Recovered/Not Resolved]
